FAERS Safety Report 12092647 (Version 4)
Quarter: 2018Q4

REPORT INFORMATION
  Report Type: Report from Study
  Country: US (occurrence: US)
  Receive Date: 20160219
  Receipt Date: 20181009
  Transmission Date: 20190204
  Serious: Yes (Other)
  Sender: FDA-Public Use
  Company Number: US-AMGEN-USASL2016019478

PATIENT
  Age: 45 Year
  Sex: Female

DRUGS (3)
  1. ENBREL [Suspect]
     Active Substance: ETANERCEPT
     Dosage: UNK
     Route: 065
     Dates: start: 20180828
  2. ENBREL [Suspect]
     Active Substance: ETANERCEPT
     Dosage: UNK
     Route: 065
  3. ENBREL [Suspect]
     Active Substance: ETANERCEPT
     Indication: RHEUMATOID ARTHRITIS
     Dosage: 25 MG, 2 TIMES/WK
     Route: 065
     Dates: start: 2008

REACTIONS (12)
  - Loss of consciousness [Unknown]
  - Injection site pruritus [Unknown]
  - Multiple sclerosis [Unknown]
  - Injection site erythema [Unknown]
  - Gait disturbance [Unknown]
  - Feeling abnormal [Unknown]
  - Asthma [Unknown]
  - Seizure [Unknown]
  - Rheumatoid arthritis [Unknown]
  - Carpal tunnel syndrome [Unknown]
  - Pain [Unknown]
  - Epilepsy [Unknown]

NARRATIVE: CASE EVENT DATE: 201602
